FAERS Safety Report 6284878-5 (Version None)
Quarter: 2009Q3

REPORT INFORMATION
  Report Type: 
  Country: None (occurrence: None)
  Receive Date: 20090727
  Receipt Date: 20090716
  Transmission Date: 20100115
  Serious: Yes (Death, Life-Threatening)
  Sender: FDA-Public Use
  Company Number: B0584335A

PATIENT
  Sex: Male

DRUGS (1)
  1. ARIXTRA [Suspect]
     Dosage: 2.5MG PER DAY
     Route: 058
     Dates: start: 20090218, end: 20090308

REACTIONS (11)
  - ATRIAL FIBRILLATION [None]
  - CIRCULATORY COLLAPSE [None]
  - CLONIC CONVULSION [None]
  - HAEMORRHAGE INTRACRANIAL [None]
  - HEMIPLEGIA [None]
  - INTRACRANIAL HAEMATOMA [None]
  - OEDEMA [None]
  - OFF LABEL USE [None]
  - RESPIRATORY DISORDER [None]
  - SOMNOLENCE [None]
  - VOMITING [None]
